FAERS Safety Report 8914740 (Version 1)
Quarter: 2012Q4

REPORT INFORMATION
  Report Type: Report from Study
  Country: US (occurrence: US)
  Receive Date: 20121119
  Receipt Date: 20121119
  Transmission Date: 20130627
  Serious: Yes (Death, Hospitalization)
  Sender: FDA-Public Use
  Company Number: US-ROCHE-1102643

PATIENT
  Age: 69 Year
  Sex: Male
  Weight: 105.33 kg

DRUGS (1)
  1. CAPECITABINE [Suspect]
     Indication: PANCREATIC CARCINOMA
     Route: 048
     Dates: start: 20120516, end: 201209

REACTIONS (2)
  - Abdominal pain upper [Not Recovered/Not Resolved]
  - Disease progression [Fatal]
